FAERS Safety Report 9498583 (Version 4)
Quarter: 2014Q2

REPORT INFORMATION
  Report Type: Spontaneous
  Country: US (occurrence: US)
  Receive Date: 20130904
  Receipt Date: 20140404
  Transmission Date: 20141212
  Serious: Yes (Death, Other)
  Sender: FDA-Public Use
  Company Number: US-PFIZER INC-2013251345

PATIENT
  Age: 86 Year
  Sex: Female

DRUGS (2)
  1. REVATIO [Suspect]
     Indication: PULMONARY FIBROSIS
     Dosage: 20 MG, 3X/DAY
     Dates: start: 20091125
  2. REVATIO [Suspect]
     Dosage: 60 MG, DAILY
     Dates: start: 20120406

REACTIONS (3)
  - Pulmonary arterial hypertension [Fatal]
  - Eye disorder [Recovered/Resolved]
  - Off label use [Unknown]
